FAERS Safety Report 5709063-4 (Version None)
Quarter: 2008Q2

REPORT INFORMATION
  Report Type: 
  Country: None (occurrence: None)
  Receive Date: 20080416
  Receipt Date: 20080416
  Transmission Date: 20081010
  Serious: Yes (Hospitalization)
  Sender: FDA-Public Use
  Company Number: None

PATIENT
  Sex: Male
  Weight: 75.52 kg

DRUGS (4)
  1. FLUOROURACIL [Suspect]
     Dosage: 10582 MG
     Dates: end: 20080324
  2. BEVACIZUMAB (RHUMAB VEGF) [Suspect]
     Dosage: 788 MG
     Dates: end: 20080324
  3. LEUCOVORIN CALCIUM [Suspect]
     Dosage: 1510 MG
     Dates: end: 20080324
  4. ELOXATIN [Suspect]
     Dosage: 320 MG
     Dates: end: 20080324

REACTIONS (2)
  - ACUTE PRERENAL FAILURE [None]
  - DEHYDRATION [None]
